FAERS Safety Report 12068814 (Version 1)
Quarter: 2016Q1

REPORT INFORMATION
  Report Type: Spontaneous
  Country: CA (occurrence: CA)
  Receive Date: 20160211
  Receipt Date: 20160211
  Transmission Date: 20160526
  Serious: Yes (Hospitalization, Other)
  Sender: FDA-Public Use
  Company Number: PHHY2016CA015706

PATIENT
  Age: 15 Year
  Sex: Female

DRUGS (3)
  1. PROCHLORPERAZINE MALEATE. [Suspect]
     Active Substance: PROCHLORPERAZINE MALEATE
     Indication: NAUSEA
     Dosage: UNK
     Route: 042
  2. PROCHLORPERAZINE. [Suspect]
     Active Substance: PROCHLORPERAZINE
     Indication: NAUSEA
     Dosage: 10 MG, BID
     Route: 048
  3. DIMENHYDRINATE. [Concomitant]
     Active Substance: DIMENHYDRINATE
     Indication: PRODUCT USED FOR UNKNOWN INDICATION
     Route: 065

REACTIONS (8)
  - Eye movement disorder [Recovered/Resolved]
  - Dysarthria [Recovered/Resolved]
  - Anxiety [Recovered/Resolved]
  - Musculoskeletal stiffness [Recovered/Resolved]
  - Swollen tongue [Recovered/Resolved]
  - Tremor [Recovered/Resolved]
  - Torticollis [Recovered/Resolved]
  - Tachycardia [Recovered/Resolved]
